FAERS Safety Report 16222369 (Version 2)
Quarter: 2020Q2

REPORT INFORMATION
  Report Type: Spontaneous
  Country: IT (occurrence: IT)
  Receive Date: 20190422
  Receipt Date: 20200422
  Transmission Date: 20200713
  Serious: Yes (Life-Threatening)
  Sender: FDA-Public Use
  Company Number: IT-BRISTOL-MYERS SQUIBB COMPANY-BMS-2019-035992

PATIENT
  Age: 91 Year
  Sex: Female
  Weight: 50 kg

DRUGS (2)
  1. ENTUMIN [Concomitant]
     Active Substance: CLOTHIAPINE
     Indication: PSYCHOTIC DISORDER
     Dosage: 17 MILLIGRAM, 1 DAY
     Route: 048
  2. COUMADIN [Suspect]
     Active Substance: WARFARIN SODIUM
     Indication: ATRIAL FIBRILLATION
     Dosage: 1 MILLIGRAM, 1 DAY
     Route: 048
     Dates: end: 20190401

REACTIONS (3)
  - Overdose [Recovering/Resolving]
  - Anaemia [Recovering/Resolving]
  - Haematoma [Recovering/Resolving]

NARRATIVE: CASE EVENT DATE: 20190402
